FAERS Safety Report 5582275-9 (Version None)
Quarter: 2008Q1

REPORT INFORMATION
  Report Type: 
  Country: None (occurrence: None)
  Receive Date: 20080104
  Receipt Date: 20080103
  Transmission Date: 20080703
  Serious: Yes (Death, Life-Threatening, Hospitalization, Other)
  Sender: FDA-Public Use
  Company Number: US-MERCK-0712USA08562

PATIENT
  Sex: Male

DRUGS (1)
  1. PRINIVIL [Suspect]
     Route: 048

REACTIONS (5)
  - DEATH [None]
  - HYPERKALAEMIA [None]
  - HYPERTENSION [None]
  - OVERDOSE [None]
  - RENAL FAILURE [None]
